FAERS Safety Report 4832725-8 (Version None)
Quarter: 2005Q4

REPORT INFORMATION
  Report Type: 
  Country: None (occurrence: None)
  Receive Date: 20051117
  Receipt Date: 20051117
  Transmission Date: 20060501
  Serious: No
  Sender: FDA-Public Use
  Company Number: None

PATIENT

DRUGS (1)
  1. NASAL SALINE  MOISTURIZER,   15ML     BAYER [Suspect]
     Dosage: OCCLUSIVE
     Route: 046

REACTIONS (1)
  - MEDICATION ERROR [None]
